FAERS Safety Report 10861554 (Version 5)
Quarter: 2015Q2

REPORT INFORMATION
  Report Type: Spontaneous
  Country: US (occurrence: US)
  Receive Date: 20150224
  Receipt Date: 20150513
  Transmission Date: 20150821
  Serious: No
  Sender: FDA-Public Use
  Company Number: US-009507513-1502USA009876

PATIENT
  Age: 19 Year
  Sex: Female
  Weight: 90.7 kg

DRUGS (2)
  1. NEXPLANON [Suspect]
     Active Substance: ETONOGESTREL
     Dosage: UNK
     Route: 059
     Dates: start: 20150311
  2. NEXPLANON [Suspect]
     Active Substance: ETONOGESTREL
     Indication: CONTRACEPTION
     Dosage: STRENGTH: 68 (UNIT NOT SPECIFIED)
     Route: 059
     Dates: start: 20140314, end: 20150311

REACTIONS (9)
  - Breast tenderness [Recovered/Resolved]
  - Device breakage [Recovered/Resolved]
  - Premenstrual syndrome [Recovered/Resolved]
  - Implant site pruritus [Not Recovered/Not Resolved]
  - Product quality issue [Unknown]
  - Menstruation normal [Unknown]
  - Dysmenorrhoea [Recovered/Resolved]
  - Implant site pain [Recovered/Resolved]
  - Discomfort [Unknown]

NARRATIVE: CASE EVENT DATE: 2015
